FAERS Safety Report 6682444-0 (Version None)
Quarter: 2010Q2

REPORT INFORMATION
  Report Type: 
  Country: None (occurrence: None)
  Receive Date: 20100415
  Receipt Date: 20100412
  Transmission Date: 20101027
  Serious: Yes (Death, Hospitalization, Other)
  Sender: FDA-Public Use
  Company Number: US-ASTRAZENECA-2007UW12125

PATIENT
  Age: 458 Month
  Sex: Male
  Weight: 61.2 kg

DRUGS (18)
  1. SEROQUEL [Suspect]
     Indication: SCHIZOAFFECTIVE DISORDER
     Dosage: 75-400 MG
     Route: 048
     Dates: start: 20030601
  2. SEROQUEL [Suspect]
     Route: 048
     Dates: start: 20031210, end: 20060824
  3. GEODON [Concomitant]
     Dosage: 20 TO 80 MG
     Dates: start: 20051212, end: 20070213
  4. HALDOL [Concomitant]
     Dates: start: 20040317
  5. RISPERDAL [Concomitant]
     Dosage: 1-4 MG
     Dates: start: 20030601
  6. RISPERDAL [Concomitant]
     Dosage: 1 TO 4 MG
     Dates: start: 20040429, end: 20051230
  7. THORAZINE [Concomitant]
     Dates: start: 20031212, end: 20060824
  8. THORAZINE [Concomitant]
     Dates: start: 20031212
  9. RESTORIL [Concomitant]
  10. VALIUM [Concomitant]
  11. AMITRIPTYLINE HCL [Concomitant]
  12. ELAVIL [Concomitant]
  13. EFFEXOR [Concomitant]
  14. TRAZODONE [Concomitant]
  15. KLONOPIN [Concomitant]
  16. PAXIL [Concomitant]
     Route: 048
     Dates: start: 20030601
  17. LEXAPRO [Concomitant]
  18. NEURONTIN [Concomitant]
     Dosage: 300-900 MG
     Dates: start: 20031003

REACTIONS (10)
  - AMNESIA [None]
  - DEATH [None]
  - EXTRAPYRAMIDAL DISORDER [None]
  - FIBROMYALGIA [None]
  - MUSCLE SPASMS [None]
  - PANCREATITIS [None]
  - PARKINSONISM [None]
  - TARDIVE DYSKINESIA [None]
  - TREMOR [None]
  - WEIGHT INCREASED [None]
